FAERS Safety Report 7048391-X (Version None)
Quarter: 2010Q4

REPORT INFORMATION
  Report Type: 
  Country: None (occurrence: None)
  Receive Date: 20101015
  Receipt Date: 20101015
  Transmission Date: 20110411
  Serious: Yes (Other)
  Sender: FDA-Public Use
  Company Number: None

PATIENT
  Age: 11 Year
  Sex: Male
  Weight: 23.9 kg

DRUGS (1)
  1. RISPERDONE [Suspect]
     Dosage: 1/4 CC Q4PM DAILY ORAL 1/2 CC HS DAILY ORAL
     Route: 048
     Dates: start: 20090304, end: 20090306

REACTIONS (3)
  - AGGRESSION [None]
  - BLINDNESS [None]
  - INSOMNIA [None]
